FAERS Safety Report 6061619-8 (Version None)
Quarter: 2009Q1

REPORT INFORMATION
  Report Type: 
  Country: None (occurrence: None)
  Receive Date: 20090202
  Receipt Date: 20090123
  Transmission Date: 20090719
  Serious: Yes (Death, Hospitalization)
  Sender: FDA-Public Use
  Company Number: A0754009A

PATIENT
  Age: 80 Year
  Sex: Female
  Weight: 52.3 kg

DRUGS (7)
  1. AVANDIA [Suspect]
     Dosage: 8MG PER DAY
     Route: 048
     Dates: start: 20050627, end: 20060526
  2. METFORMIN [Concomitant]
  3. GLUCOTROL [Concomitant]
  4. NORVASC [Concomitant]
  5. LISINOPRIL [Concomitant]
  6. PROTONIX [Concomitant]
  7. FERROUS SULFATE TAB [Concomitant]

REACTIONS (1)
  - MYOCARDIAL INFARCTION [None]
